FAERS Safety Report 5272559-6 (Version None)
Quarter: 2007Q1

REPORT INFORMATION
  Report Type: 
  Country: None (occurrence: None)
  Receive Date: 20070320
  Receipt Date: 20070320
  Transmission Date: 20070707
  Serious: No
  Sender: FDA-Public Use
  Company Number: None

PATIENT
  Age: 53 Year
  Sex: Female
  Weight: 68.0396 kg

DRUGS (1)
  1. GENERIC ESTROGEN 0.0375 NO AVAILABLE [Suspect]
     Indication: MENOPAUSAL SYMPTOMS
     Dosage: 0.0375 WEEKLY TRANSDERMAL
     Route: 062
     Dates: start: 20050901, end: 20050930

REACTIONS (3)
  - BREAST PAIN [None]
  - PHARMACEUTICAL PRODUCT COMPLAINT [None]
  - THERAPEUTIC RESPONSE UNEXPECTED WITH DRUG SUBSTITUTION [None]
